FAERS Safety Report 23214357 (Version 1)
Quarter: 2023Q4

REPORT INFORMATION
  Report Type: Spontaneous
  Country: SE (occurrence: SE)
  Receive Date: 20231121
  Receipt Date: 20231121
  Transmission Date: 20240110
  Serious: Yes (Hospitalization, Disabling)
  Sender: FDA-Public Use
  Company Number: SE-TEVA-2023-SE-2948471

PATIENT
  Age: 55 Year
  Sex: Male

DRUGS (14)
  1. CLINDAMYCIN [Suspect]
     Active Substance: CLINDAMYCIN
     Indication: Arthritis infective
     Route: 065
  2. CLINDAMYCIN [Suspect]
     Active Substance: CLINDAMYCIN
     Dosage: 300 MG THREE TIMES A DAY FOR THREE MONTHS
     Route: 048
  3. AMOXICILLIN [Suspect]
     Active Substance: AMOXICILLIN
     Indication: Arthritis infective
     Dosage: 1 G THREE TIMES A DAY FOR 3 MONTHS
     Route: 048
  4. AMOXICILLIN [Suspect]
     Active Substance: AMOXICILLIN
     Indication: Cutibacterium acnes infection
     Dosage: ANOTHER 3 MONTH COURSE
     Route: 048
  5. AMOXICILLIN [Suspect]
     Active Substance: AMOXICILLIN
     Indication: Staphylococcal infection
  6. GENTAMICIN [Suspect]
     Active Substance: GENTAMICIN
     Indication: Arthritis infective
     Route: 065
  7. VANCOMYCIN [Suspect]
     Active Substance: VANCOMYCIN
     Indication: Arthritis infective
     Route: 065
  8. DALBAVANCIN [Suspect]
     Active Substance: DALBAVANCIN
     Indication: Arthritis infective
     Dosage: 1000 MG
     Route: 042
  9. DALBAVANCIN [Suspect]
     Active Substance: DALBAVANCIN
     Route: 042
  10. AMLODIPINE [Concomitant]
     Active Substance: AMLODIPINE BESYLATE
     Indication: Product used for unknown indication
     Route: 065
  11. TESTOSTERONE [Concomitant]
     Active Substance: TESTOSTERONE
     Indication: Product used for unknown indication
     Route: 065
  12. BROMOCRIPTINE [Concomitant]
     Active Substance: BROMOCRIPTINE
     Indication: Product used for unknown indication
     Route: 065
  13. OXYCODONE [Concomitant]
     Active Substance: OXYCODONE
     Indication: Product used for unknown indication
     Route: 065
  14. ENALAPRIL [Concomitant]
     Active Substance: ENALAPRIL
     Indication: Hypertension
     Dosage: 10 MG
     Route: 065

REACTIONS (4)
  - Drug ineffective [Unknown]
  - Ototoxicity [Not Recovered/Not Resolved]
  - Deafness [Not Recovered/Not Resolved]
  - Off label use [Unknown]
